FAERS Safety Report 7351091-X (Version None)
Quarter: 2011Q1

REPORT INFORMATION
  Report Type: 
  Country: None (occurrence: None)
  Receive Date: 20110314
  Receipt Date: 20110311
  Transmission Date: 20110831
  Serious: Yes (Death)
  Sender: FDA-Public Use
  Company Number: AU-PFIZER INC-2009208971

PATIENT
  Age: 56 Year
  Sex: Male

DRUGS (13)
  1. MARAVIROC [Suspect]
     Dosage: 300 MG, 2X/DAY
     Route: 048
     Dates: start: 20080402, end: 20080714
  2. NASONEX [Concomitant]
     Dosage: UNK
     Dates: start: 20061014
  3. VIAGRA [Concomitant]
     Dosage: UNK
     Route: 048
     Dates: start: 20080123
  4. NORVIR [Concomitant]
     Dosage: 100 MG, UNK
     Route: 048
     Dates: start: 20080714
  5. MARAVIROC [Suspect]
     Dosage: 150 MG, 2X/DAY
     Route: 048
     Dates: start: 20050427, end: 20080401
  6. LIPITOR [Concomitant]
     Dosage: 80 MG, 1X/DAY
     Route: 048
     Dates: start: 20060705
  7. AUGMENTIN DUO FORTE [Concomitant]
     Dosage: 1 MG, 2X/DAY
     Route: 048
     Dates: start: 20090414
  8. PREZISTA [Concomitant]
     Dosage: 300 MG, 2X/DAY
     Route: 048
     Dates: start: 20080714
  9. PANADEINE FORTE [Concomitant]
     Dosage: 1 MG, AS NEEDED
     Route: 048
     Dates: start: 20090414
  10. FAMCICLOVIR [Concomitant]
     Dosage: 500 MG, 1X/DAY
     Route: 048
     Dates: start: 20050919
  11. TEMAZEPAM [Concomitant]
     Dosage: UNK
     Route: 048
     Dates: start: 20061014
  12. ISENTRESS [Concomitant]
     Dosage: 400 MG, 2X/DAY
     Dates: start: 20080714
  13. EPILIM [Concomitant]
     Dosage: UNK
     Route: 048
     Dates: start: 20040906

REACTIONS (1)
  - DEATH [None]
